FAERS Safety Report 9328560 (Version 1)
Quarter: 2013Q2

REPORT INFORMATION
  Report Type: Spontaneous
  Country: US (occurrence: US)
  Receive Date: 20130604
  Receipt Date: 20130604
  Transmission Date: 20140414
  Serious: No
  Sender: FDA-Public Use
  Company Number: US-SANOFI-AVENTIS-2012SA069631

PATIENT
  Age: 77 Year
  Sex: Female
  Weight: 68 kg

DRUGS (4)
  1. LANTUS SOLOSTAR [Suspect]
     Indication: TYPE 2 DIABETES MELLITUS
     Dosage: DOSE:24 UNIT(S)
     Route: 058
     Dates: start: 200901
  2. SOLOSTAR [Suspect]
     Indication: TYPE 2 DIABETES MELLITUS
     Dates: start: 200901
  3. NOVOLOG [Suspect]
     Indication: TYPE 2 DIABETES MELLITUS
     Route: 065
     Dates: start: 2012
  4. ANTIHYPERTENSIVES [Suspect]
     Indication: HYPERTENSION
     Route: 065

REACTIONS (6)
  - Local swelling [Not Recovered/Not Resolved]
  - Blood glucose decreased [Unknown]
  - Palpitations [Unknown]
  - Hyperhidrosis [Unknown]
  - Tremor [Unknown]
  - Injection site pain [Unknown]
